FAERS Safety Report 7782736-8 (Version None)
Quarter: 2011Q3

REPORT INFORMATION
  Report Type: 
  Country: None (occurrence: None)
  Receive Date: 20110928
  Receipt Date: 20110921
  Transmission Date: 20111222
  Serious: Yes (Other)
  Sender: FDA-Public Use
  Company Number: CA-PFIZER INC-2011225366

PATIENT
  Age: 56 Year
  Sex: Female

DRUGS (4)
  1. XALATAN [Suspect]
     Indication: GLAUCOMA
     Dosage: 1 GTT IN BOTH EYES, 1X/DAY
     Route: 047
  2. XALATAN [Suspect]
     Dosage: 1 GTT IN THE RIGHT EYE, 1X/DAY
     Dates: start: 20020101
  3. COSOPT [Concomitant]
     Indication: GLAUCOMA
     Dosage: 1 GTT IN BOTH EYES, UNK
  4. COSOPT [Concomitant]
     Dosage: 1 GTT IN THE RIGHT EYE, UNK
     Dates: start: 20020101

REACTIONS (2)
  - CATARACT [None]
  - INTRAOCULAR PRESSURE INCREASED [None]
